FAERS Safety Report 16125932 (Version 1)
Quarter: 2019Q1

REPORT INFORMATION
  Report Type: Spontaneous
  Country: US (occurrence: US)
  Receive Date: 20190328
  Receipt Date: 20190328
  Transmission Date: 20190418
  Serious: Yes (Other)
  Sender: FDA-Public Use
  Company Number: US-ROCHE-2286349

PATIENT
  Age: 46 Year
  Sex: Male
  Weight: 63.56 kg

DRUGS (4)
  1. OCREVUS [Suspect]
     Active Substance: OCRELIZUMAB
     Dosage: FULL
     Route: 042
     Dates: start: 201807
  2. OCREVUS [Suspect]
     Active Substance: OCRELIZUMAB
     Dosage: FULL
     Route: 042
     Dates: start: 201901
  3. OCREVUS [Suspect]
     Active Substance: OCRELIZUMAB
     Indication: RELAPSING-REMITTING MULTIPLE SCLEROSIS
     Dosage: FIRST HALF PORTION
     Route: 042
     Dates: start: 201712
  4. OCREVUS [Suspect]
     Active Substance: OCRELIZUMAB
     Dosage: SECOND HALF PORTION
     Route: 042
     Dates: start: 201801

REACTIONS (3)
  - Myocardial infarction [Unknown]
  - Fatigue [Recovered/Resolved with Sequelae]
  - Feeling abnormal [Recovered/Resolved with Sequelae]

NARRATIVE: CASE EVENT DATE: 201801
